FAERS Safety Report 8550734-2 (Version None)
Quarter: 2012Q3

REPORT INFORMATION
  Report Type: 
  Country: None (occurrence: None)
  Receive Date: 20120730
  Receipt Date: 20120724
  Transmission Date: 20120928
  Serious: Yes (Hospitalization, Other)
  Sender: FDA-Public Use
  Company Number: TW-PFIZER INC-2012178219

PATIENT
  Age: 50 Year
  Sex: Male

DRUGS (11)
  1. TAMSULOSIN [Concomitant]
     Indication: BENIGN PROSTATIC HYPERPLASIA
  2. FOLIC ACID [Concomitant]
     Indication: RHEUMATOID ARTHRITIS
  3. REVATIO [Suspect]
     Indication: PULMONARY HYPERTENSION
     Dosage: 20 MG TWO TIMES PER DAY
     Route: 048
  4. HYDROXYCHLOROQUINE [Concomitant]
     Indication: RHEUMATOID ARTHRITIS
  5. PREDNISOLONE [Concomitant]
     Indication: RHEUMATOID ARTHRITIS
  6. XANAX [Concomitant]
  7. VITAMIN B COMPLEX CAP [Concomitant]
     Indication: RHEUMATOID ARTHRITIS
  8. DEXTROMETHORPHAN [Concomitant]
     Indication: INTERSTITIAL LUNG DISEASE
  9. CORDARONE [Concomitant]
     Indication: ATRIAL FIBRILLATION
  10. SYMBICORT [Concomitant]
     Indication: INTERSTITIAL LUNG DISEASE
  11. ACETYLCYSTEINE [Concomitant]
     Indication: INTERSTITIAL LUNG DISEASE

REACTIONS (1)
  - OESOPHAGEAL VARICES HAEMORRHAGE [None]
